FAERS Safety Report 6802030-9 (Version None)
Quarter: 2010Q2

REPORT INFORMATION
  Report Type: 
  Country: None (occurrence: None)
  Receive Date: 20100629
  Receipt Date: 20080108
  Transmission Date: 20101027
  Serious: No
  Sender: FDA-Public Use
  Company Number: US-PFIZER INC-2007068328

PATIENT
  Sex: Male
  Weight: 65.9 kg

DRUGS (2)
  1. VIAGRA [Suspect]
     Indication: ERECTILE DYSFUNCTION
     Dates: start: 20070813
  2. WARFARIN SODIUM [Concomitant]

REACTIONS (2)
  - DRUG INEFFECTIVE [None]
  - PHOTOPHOBIA [None]
